FAERS Safety Report 10741165 (Version 2)
Quarter: 2015Q1

REPORT INFORMATION
  Report Type: Spontaneous
  Country: US (occurrence: US)
  Receive Date: 20150127
  Receipt Date: 20150304
  Transmission Date: 20150721
  Serious: No
  Sender: FDA-Public Use
  Company Number: US-B.I. PHARMACEUTICALS,INC./RIDGEFIELD-2015-BI-02212BP

PATIENT
  Age: 56 Year
  Sex: Female
  Weight: 49.9 kg

DRUGS (1)
  1. COMBIVENT [Suspect]
     Active Substance: ALBUTEROL SULFATE\IPRATROPIUM BROMIDE
     Indication: ASTHMA
     Dosage: STRENGTH: 20 MCG / 100 MCG; DAILY DOSE: 80MCG/400 MCG
     Route: 055
     Dates: start: 2011

REACTIONS (3)
  - Off label use [Unknown]
  - Drug ineffective [Recovered/Resolved]
  - Product quality issue [Unknown]

NARRATIVE: CASE EVENT DATE: 2011
